FAERS Safety Report 6414171-9 (Version None)
Quarter: 2009Q4

REPORT INFORMATION
  Report Type: 
  Country: None (occurrence: None)
  Receive Date: 20091026
  Receipt Date: 20091016
  Transmission Date: 20100525
  Serious: Yes (Hospitalization)
  Sender: FDA-Public Use
  Company Number: GB-PFIZER INC-2009286050

PATIENT

DRUGS (2)
  1. NICOTINE [Suspect]
     Dosage: UNK
     Route: 064
  2. LABETALOL [Concomitant]
     Dosage: UNK
     Route: 065

REACTIONS (3)
  - BREAST FEEDING [None]
  - CONVULSION [None]
  - DRUG EXPOSURE DURING PREGNANCY [None]
